FAERS Safety Report 9563376 (Version 2)
Quarter: 2013Q3

REPORT INFORMATION
  Report Type: Spontaneous
  Country: JP (occurrence: JP)
  Receive Date: 20130927
  Receipt Date: 20130927
  Transmission Date: 20140515
  Serious: Yes (Hospitalization)
  Sender: FDA-Public Use
  Company Number: JP-ASTRAZENECA-2013SE71241

PATIENT
  Sex: 0

DRUGS (2)
  1. NEXIUM [Suspect]
     Indication: GASTROOESOPHAGEAL REFLUX DISEASE
     Route: 048
     Dates: start: 20130905
  2. OTHER DRUGS [Concomitant]

REACTIONS (2)
  - Delirium [Recovering/Resolving]
  - Aggression [Recovering/Resolving]
